FAERS Safety Report 9087675 (Version 1)
Quarter: 2013Q1

REPORT INFORMATION
  Report Type: Report from Study
  Country: US (occurrence: US)
  Receive Date: 20130201
  Receipt Date: 20130201
  Transmission Date: 20140127
  Serious: No
  Sender: FDA-Public Use
  Company Number: US-ABBOTT-12P-163-1023879-00

PATIENT
  Age: 56 Year
  Sex: Female

DRUGS (3)
  1. HUMIRA [Suspect]
     Indication: CROHN^S DISEASE
  2. XANAX [Concomitant]
     Indication: ANXIETY
     Dosage: 1 TAB IN THE MORNING AND 1 TAB IN THE EVENING
  3. VALTREX [Concomitant]
     Indication: PROPHYLAXIS
     Dosage: DAILY

REACTIONS (3)
  - Device malfunction [Recovered/Resolved]
  - Flatulence [Recovered/Resolved]
  - Wrong technique in drug usage process [Recovered/Resolved]
